FAERS Safety Report 6393734-3 (Version None)
Quarter: 2009Q4

REPORT INFORMATION
  Report Type: 
  Country: None (occurrence: None)
  Receive Date: 20091008
  Receipt Date: 20090824
  Transmission Date: 20100525
  Serious: Yes (Other)
  Sender: FDA-Public Use
  Company Number: CA-ROCHE-651875

PATIENT
  Age: 13 Year
  Sex: Male

DRUGS (14)
  1. ALL-TRANS-RETINOIC ACID [Suspect]
     Dosage: FROM DAY 1 TO 30 HELD UP FOR 9 DAYS FOLLOWING THE EVENTS
     Route: 065
  2. ALL-TRANS-RETINOIC ACID [Suspect]
     Dosage: HELD UP FOR 3 DAYS
     Route: 065
  3. ALL-TRANS-RETINOIC ACID [Suspect]
     Dosage: 2 COURSES OF CONSOLIDATION THERAPY, DAY 1 TO 7
     Route: 065
  4. ALL-TRANS-RETINOIC ACID [Suspect]
     Dosage: MAINTENANCE THERAPY AT 45 MG/ME2 DAILY (DAY 1 TO 15 EVERY THREE MONTHS)
     Route: 065
  5. DAUNORUBICIN HCL [Suspect]
     Dosage: FROM DAY 3 TO 6
     Route: 065
  6. DAUNORUBICIN HCL [Suspect]
     Dosage: 2 COURSES OF CONSOLIDATION THERAPY, DAY 1 TO 2
     Route: 065
  7. CYTARABINE [Suspect]
     Dosage: FROM DAY 3 TO 9
     Route: 037
  8. CYTARABINE [Suspect]
     Dosage: REINDUCTION TREATMENT
     Route: 037
  9. CYTARABINE [Suspect]
     Dosage: HIGH DOSE ARA-C AT 3 G/ME2 FOR 4 DOSES, ROUTE: INTRAVENOUS
     Route: 037
  10. MERCAPTOPURINE [Suspect]
     Dosage: MAINTENANCE THERAPY
     Route: 048
  11. MERCAPTOPURINE [Suspect]
     Route: 048
  12. METHOTREXATE [Concomitant]
     Dosage: MAINTENANCE THERAPY
     Route: 037
  13. HYDROCORTISONE [Concomitant]
     Dosage: REINDUCTION TREATMENT
     Route: 037
  14. ACETAZOLAMID [Concomitant]
     Indication: DRUG USE FOR UNKNOWN INDICATION
     Dosage: STARTED ON DAY 25 OF INDUCTION
     Route: 065

REACTIONS (4)
  - ACUTE PROMYELOCYTIC LEUKAEMIA [None]
  - BENIGN INTRACRANIAL HYPERTENSION [None]
  - SPLENIC INFARCTION [None]
  - VENOUS THROMBOSIS LIMB [None]
